FAERS Safety Report 9871469 (Version 2)
Quarter: 2014Q1

REPORT INFORMATION
  Report Type: Report from Study
  Country: US (occurrence: US)
  Receive Date: 20140205
  Receipt Date: 20140224
  Transmission Date: 20141002
  Serious: Yes (Death, Hospitalization, Other)
  Sender: FDA-Public Use
  Company Number: US-BRISTOL-MYERS SQUIBB COMPANY-20104279

PATIENT
  Age: 71 Year
  Sex: Male
  Weight: 93 kg

DRUGS (7)
  1. SPRYCEL [Suspect]
     Indication: ACUTE LYMPHOCYTIC LEUKAEMIA
     Dosage: TOTAL NO. OF COURSE:6?LAST DOSE:07JAN2014
     Route: 048
     Dates: start: 20130809
  2. ETOPOSIDE [Suspect]
     Indication: ACUTE LYMPHOCYTIC LEUKAEMIA
     Dosage: LAST DOSE ON 14NOV2013
     Route: 042
     Dates: start: 20130809
  3. CYTARABINE [Suspect]
     Indication: ACUTE LYMPHOCYTIC LEUKAEMIA
     Dosage: LAST DOSE ON 15NOV2013
     Route: 042
     Dates: start: 20130809
  4. DEXAMETHASONE [Suspect]
     Indication: ACUTE LYMPHOCYTIC LEUKAEMIA
     Dosage: LAST DOSE ON 24DEC2013?ORAL ROUTE ALSO
     Route: 042
     Dates: start: 20130809
  5. MERCAPTOPURINE [Suspect]
     Indication: ACUTE LYMPHOCYTIC LEUKAEMIA
     Dosage: LAST DOSE ON 06JAN2014
     Route: 048
     Dates: start: 20130809
  6. METHOTREXATE [Suspect]
     Indication: ACUTE LYMPHOCYTIC LEUKAEMIA
     Dosage: LAST DOSE ON 25DEC2013?ORAL ROUTE ALSO
     Route: 042
     Dates: start: 20130809
  7. VINCRISTINE SULFATE [Suspect]
     Indication: ACUTE LYMPHOCYTIC LEUKAEMIA
     Dosage: LAST DOSE ON 20DEC2013
     Route: 042
     Dates: start: 20130809

REACTIONS (5)
  - Multi-organ failure [Fatal]
  - Hyperkalaemia [Unknown]
  - Upper gastrointestinal haemorrhage [Unknown]
  - Myocardial infarction [Unknown]
  - Platelet count decreased [Unknown]
